FAERS Safety Report 22289301 (Version 8)
Quarter: 2025Q2

REPORT INFORMATION
  Report Type: Spontaneous
  Country: US (occurrence: US)
  Receive Date: 20230505
  Receipt Date: 20250513
  Transmission Date: 20250716
  Serious: No
  Sender: PFIZER
  Company Number: US-PFIZER INC-PV202300078842

PATIENT
  Age: 57 Year
  Sex: Female

DRUGS (1)
  1. CIBINQO [Suspect]
     Active Substance: ABROCITINIB
     Dosage: 100 MG, 1X/DAY

REACTIONS (3)
  - Pruritus [Not Recovered/Not Resolved]
  - Nasopharyngitis [Unknown]
  - Somnolence [Unknown]

NARRATIVE: CASE EVENT DATE: 20230401
